FAERS Safety Report 5619996-5 (Version None)
Quarter: 2008Q1

REPORT INFORMATION
  Report Type: 
  Country: None (occurrence: None)
  Receive Date: 20080208
  Receipt Date: 20080129
  Transmission Date: 20080703
  Serious: Yes (Hospitalization, Other)
  Sender: FDA-Public Use
  Company Number: US-ROCHE-522919

PATIENT
  Age: 21 Year
  Sex: Male
  Weight: 58.1 kg

DRUGS (15)
  1. ACCUTANE [Suspect]
     Indication: ACNE
     Route: 048
     Dates: start: 19940301, end: 19940819
  2. ACCUTANE [Suspect]
     Route: 048
     Dates: start: 19950123, end: 19950602
  3. ACCUTANE [Suspect]
     Dosage: VARIOUS DOSAGES
     Route: 048
     Dates: start: 19950701, end: 19960101
  4. ACCUTANE [Suspect]
     Route: 048
     Dates: start: 19960901, end: 19970409
  5. ACCUTANE [Suspect]
     Route: 048
     Dates: start: 19980114
  6. ACCUTANE [Suspect]
     Route: 048
     Dates: start: 19981012
  7. ACCUTANE [Suspect]
     Route: 048
     Dates: start: 19990701, end: 19990801
  8. ACCUTANE [Suspect]
     Route: 048
     Dates: start: 20000228
  9. ACCUTANE [Suspect]
     Route: 048
     Dates: start: 20000601
  10. ACCUTANE [Suspect]
     Route: 048
     Dates: start: 20010807, end: 20011201
  11. ACCUTANE [Suspect]
     Route: 048
     Dates: start: 20020101, end: 20020508
  12. ACCUTANE [Suspect]
     Route: 048
     Dates: start: 20021201, end: 20030102
  13. ACCUTANE [Suspect]
     Route: 048
     Dates: start: 20030201, end: 20030623
  14. CLARITIN [Concomitant]
     Route: 065
  15. ALLEGRA D 24 HOUR [Concomitant]
     Route: 065

REACTIONS (27)
  - ABDOMINAL PAIN [None]
  - ACNE [None]
  - ANAEMIA [None]
  - ARTHRALGIA [None]
  - BLOOD TRIGLYCERIDES INCREASED [None]
  - CHEST PAIN [None]
  - COLITIS ULCERATIVE [None]
  - CROHN'S DISEASE [None]
  - DEHYDRATION [None]
  - DRY EYE [None]
  - DRY SKIN [None]
  - ECZEMA [None]
  - EMOTIONAL DISORDER [None]
  - EMOTIONAL DISTRESS [None]
  - EYE PAIN [None]
  - FAECES DISCOLOURED [None]
  - FOLLICULITIS [None]
  - GASTROINTESTINAL DISORDER [None]
  - HAEMATOCHEZIA [None]
  - INFLAMMATORY BOWEL DISEASE [None]
  - INTESTINAL HAEMORRHAGE [None]
  - LIP DRY [None]
  - OCULAR HYPERAEMIA [None]
  - PAIN OF SKIN [None]
  - PANCREATITIS [None]
  - POUCHITIS [None]
  - RECTAL HAEMORRHAGE [None]
